FAERS Safety Report 9157096 (Version 1)
Quarter: 2013Q1

REPORT INFORMATION
  Report Type: Spontaneous
  Country: GB (occurrence: None)
  Receive Date: 20130131
  Receipt Date: 20130131
  Transmission Date: 20140127
  Serious: Yes (Disabling)
  Sender: FDA-Public Use
  Company Number: AUR-APL-2013-01003

PATIENT
  Age: 42 Year
  Sex: Male

DRUGS (8)
  1. CIPROFLOXACIN [Suspect]
     Indication: PILONIDAL CYST
     Dosage: SINGLE DOSE (500 MG), ORAL
     Route: 048
     Dates: start: 20130108, end: 20130108
  2. METRONIDAZOLE [Suspect]
     Indication: PILONIDAL CYST
     Route: 048
     Dates: start: 20130108, end: 20130109
  3. CO-CODAMOL (PANADEINE CO) [Concomitant]
  4. ERYTHROMYCIN (ERYTHROMYCIN) [Concomitant]
  5. IBUPROFEN (IBUPROFEN) [Concomitant]
  6. MORPHINE SULPHATE (MORPHINE SULFATE) [Concomitant]
  7. PARACETAMOL (PARACETAMOL) [Concomitant]
  8. TRAMADOL (TRAMADOL) [Concomitant]

REACTIONS (2)
  - Vertigo [None]
  - Hypoacusis [None]
